FAERS Safety Report 15384726 (Version 1)
Quarter: 2018Q3

REPORT INFORMATION
  Report Type: Spontaneous
  Country: RU (occurrence: RU)
  Receive Date: 20180914
  Receipt Date: 20180914
  Transmission Date: 20181010
  Serious: Yes (Death)
  Sender: FDA-Public Use
  Company Number: RU-ROCHE-2184198

PATIENT
  Sex: Female

DRUGS (6)
  1. LOPERAMIDE [Suspect]
     Active Substance: LOPERAMIDE
     Indication: DIARRHOEA
     Route: 048
  2. EXEMESTANE. [Concomitant]
     Active Substance: EXEMESTANE
  3. XELODA [Suspect]
     Active Substance: CAPECITABINE
     Indication: BREAST CANCER
     Route: 048
  4. AFINITOR [Concomitant]
     Active Substance: EVEROLIMUS
  5. ANASTROZOLE. [Concomitant]
     Active Substance: ANASTROZOLE
  6. FASLODEX [Concomitant]
     Active Substance: FULVESTRANT

REACTIONS (1)
  - Intestinal obstruction [Fatal]

NARRATIVE: CASE EVENT DATE: 2018
